APPROVED DRUG PRODUCT: NEOPHAM 6.4%
Active Ingredient: AMINO ACIDS
Strength: 6.4% (6.4GM/100ML)
Dosage Form/Route: INJECTABLE;INJECTION
Application: N018792 | Product #001
Applicant: HOSPIRA INC
Approved: Jan 17, 1984 | RLD: No | RS: No | Type: DISCN